FAERS Safety Report 4853846-X (Version None)
Quarter: 2005Q4

REPORT INFORMATION
  Report Type: 
  Country: None (occurrence: None)
  Receive Date: 20051213
  Receipt Date: 20051128
  Transmission Date: 20060501
  Serious: Yes (Other)
  Sender: FDA-Public Use
  Company Number: US200512000672

PATIENT
  Age: 49 Year
  Sex: Male
  Weight: 192 kg

DRUGS (2)
  1. ZYPREXA [Suspect]
     Indication: PSYCHOTIC DISORDER
     Dosage: 2.5 MG DAILY (1/D) ORAL
     Route: 048
     Dates: start: 19980101
  2. PROZAC [Concomitant]

REACTIONS (17)
  - ANAEMIA [None]
  - ANAL DISCOMFORT [None]
  - ANAL FISSURE [None]
  - ANAL POLYP [None]
  - ANAL SPASM [None]
  - DIABETES MELLITUS NON-INSULIN-DEPENDENT [None]
  - ERECTILE DYSFUNCTION [None]
  - HYPERGLYCAEMIA [None]
  - HYPERLIPIDAEMIA [None]
  - LIVER FUNCTION TEST ABNORMAL [None]
  - LOSS OF LIBIDO [None]
  - OBESITY [None]
  - PROCTALGIA [None]
  - RECTAL HAEMORRHAGE [None]
  - THROMBOCYTHAEMIA [None]
  - TREMOR [None]
  - WEIGHT INCREASED [None]
